FAERS Safety Report 4286229-4 (Version None)
Quarter: 2004Q1

REPORT INFORMATION
  Report Type: 
  Country: None (occurrence: None)
  Receive Date: 20040205
  Receipt Date: 20040205
  Transmission Date: 20041129
  Serious: Yes (Other)
  Sender: FDA-Public Use
  Company Number: None

PATIENT
  Age: 59 Year
  Sex: Male

DRUGS (7)
  1. GLIPIZIDE [Suspect]
     Indication: DIABETES MELLITUS
     Dosage: ONE TAB PO QD
     Route: 048
     Dates: start: 20040107, end: 20040127
  2. ATENOLOL [Concomitant]
  3. DILTIAZEM HCL [Concomitant]
  4. LOTENSIN [Concomitant]
  5. ZOCOR [Concomitant]
  6. AVANANDIA [Concomitant]
  7. METFORMIN HCL [Concomitant]

REACTIONS (3)
  - BLOOD GLUCOSE INCREASED [None]
  - PHARMACEUTICAL PRODUCT COMPLAINT [None]
  - TINNITUS [None]
